FAERS Safety Report 6088877-8 (Version None)
Quarter: 2009Q1

REPORT INFORMATION
  Report Type: 
  Country: None (occurrence: None)
  Receive Date: 20090224
  Receipt Date: 20090223
  Transmission Date: 20090719
  Serious: Yes (Hospitalization)
  Sender: FDA-Public Use
  Company Number: DE-JNJFOC-20090203473

PATIENT
  Sex: Male
  Weight: 90 kg

DRUGS (7)
  1. BLINDED; INFLIXIMAB, RECOMBINANT [Suspect]
     Route: 042
  2. BLINDED; INFLIXIMAB, RECOMBINANT [Suspect]
     Indication: IDIOPATHIC PULMONARY FIBROSIS
     Route: 042
  3. PLACEBO [Suspect]
     Route: 042
  4. PLACEBO [Suspect]
     Indication: IDIOPATHIC PULMONARY FIBROSIS
     Route: 042
  5. PREDNISOLONE [Concomitant]
     Dosage: ^2X^
     Route: 048
  6. AZATHIOPRINE [Concomitant]
     Dosage: ^1X^
     Route: 048
  7. PANTOZOL [Concomitant]
     Dosage: ^1X^
     Route: 048

REACTIONS (2)
  - HEMIANOPIA [None]
  - MENINGIOMA [None]
